FAERS Safety Report 18603117 (Version 2)
Quarter: 2021Q1

REPORT INFORMATION
  Report Type: Report from Study
  Country: AU (occurrence: AU)
  Receive Date: 20201210
  Receipt Date: 20210202
  Transmission Date: 20210419
  Serious: Yes (Hospitalization)
  Sender: FDA-Public Use
  Company Number: AU-BEIGENE USA INC-BGN-2020-002401

PATIENT

DRUGS (8)
  1. METFORMIN [Concomitant]
     Active Substance: METFORMIN HYDROCHLORIDE
     Indication: DIABETES MELLITUS
     Dosage: 1 GRAM, BID
     Dates: start: 20160202
  2. LANTUS [Concomitant]
     Active Substance: INSULIN GLARGINE
     Indication: PRODUCT USED FOR UNKNOWN INDICATION
     Dosage: 80 UNITS NOCTE
     Dates: start: 20160515
  3. RIVAROXABAN [Concomitant]
     Active Substance: RIVAROXABAN
     Indication: ATRIAL FIBRILLATION
     Dosage: 20 MILLIGRAM, QD
     Dates: start: 20150814
  4. ALLOPURINOL. [Concomitant]
     Active Substance: ALLOPURINOL
     Indication: RENAL COLIC
     Dosage: 300 MILLIGRAM
     Dates: start: 20161229
  5. BGB?3111 [Suspect]
     Active Substance: ZANUBRUTINIB
     Indication: CHRONIC LYMPHOCYTIC LEUKAEMIA
     Dosage: 320 MILLIGRAM, QD
     Route: 048
     Dates: start: 20161005, end: 20201119
  6. BGB?3111 [Suspect]
     Active Substance: ZANUBRUTINIB
     Dosage: UNK
     Route: 048
     Dates: start: 20201127
  7. DIGOXIN. [Concomitant]
     Active Substance: DIGOXIN
     Indication: ATRIAL FIBRILLATION
     Dosage: 250 MICROGRAM, QD
     Dates: start: 20150814
  8. METOPROLOL. [Concomitant]
     Active Substance: METOPROLOL
     Indication: CORONARY ARTERY DISEASE
     Dosage: 75 MILLIGRAM, BID
     Dates: start: 20160814

REACTIONS (2)
  - Herpes zoster oticus [Recovered/Resolved with Sequelae]
  - Otitis externa [Recovered/Resolved with Sequelae]

NARRATIVE: CASE EVENT DATE: 20201108
